FAERS Safety Report 9476324 (Version 1)
Quarter: 2013Q3

REPORT INFORMATION
  Report Type: Spontaneous
  Country: DE (occurrence: DE)
  Receive Date: 20130826
  Receipt Date: 20130826
  Transmission Date: 20140515
  Serious: Yes (Other)
  Sender: FDA-Public Use
  Company Number: DE-SANOFI-AVENTIS-2013SA083849

PATIENT
  Age: 50 Year
  Sex: Male
  Weight: 79 kg

DRUGS (2)
  1. LANTUS [Suspect]
     Indication: DIABETES MELLITUS
     Route: 058
  2. NOVORAPID [Concomitant]
     Indication: DIABETES MELLITUS
     Dosage: FREQUIENCY: 14 IU IN MOTNING AND 18 IU IN THE EVENING.

REACTIONS (1)
  - Bladder cancer [Unknown]
